FAERS Safety Report 4319531-8 (Version None)
Quarter: 2004Q1

REPORT INFORMATION
  Report Type: 
  Country: None (occurrence: None)
  Receive Date: 20040318
  Receipt Date: 20040318
  Transmission Date: 20041129
  Serious: Yes (Other)
  Sender: FDA-Public Use
  Company Number: None

PATIENT
  Sex: Male
  Weight: 76.2043 kg

DRUGS (2)
  1. PAXIL [Suspect]
     Indication: DEATH OF RELATIVE
     Dosage: 20 MG ONCE DAILY ORAL
     Route: 048
     Dates: start: 19970120, end: 20030724
  2. PAXIL [Suspect]
     Indication: DEPRESSION
     Dosage: 20 MG ONCE DAILY ORAL
     Route: 048
     Dates: start: 19970120, end: 20030724

REACTIONS (6)
  - DEPRESSION [None]
  - DISTURBANCE IN ATTENTION [None]
  - DIZZINESS [None]
  - DRUG DEPENDENCE [None]
  - DRUG WITHDRAWAL SYNDROME [None]
  - FATIGUE [None]
